FAERS Safety Report 11148550 (Version 2)
Quarter: 2015Q2

REPORT INFORMATION
  Report Type: Report from Study
  Country: TW (occurrence: TW)
  Receive Date: 20150529
  Receipt Date: 20150609
  Transmission Date: 20150821
  Serious: Yes (Hospitalization)
  Sender: FDA-Public Use
  Company Number: TW-PFIZER INC-2015181381

PATIENT
  Age: 83 Year
  Sex: Male

DRUGS (6)
  1. FLUOROURACIL. [Suspect]
     Active Substance: FLUOROURACIL
     Dosage: 4300 MG, (1 IN 2 WEEKS)
     Route: 041
     Dates: start: 20130603
  2. IRINOTECAN HCL [Suspect]
     Active Substance: IRINOTECAN HYDROCHLORIDE
     Indication: COLORECTAL CANCER METASTATIC
     Dosage: 285 MG, (1 IN 2 WEEKS)
     Route: 041
     Dates: start: 20130429, end: 20130429
  3. IRINOTECAN HCL [Suspect]
     Active Substance: IRINOTECAN HYDROCHLORIDE
     Dosage: 230 MG, (1 IN 2 WEEKS)
     Route: 041
     Dates: start: 20130603
  4. BEVACIZUMAB [Suspect]
     Active Substance: BEVACIZUMAB
     Indication: COLORECTAL CANCER METASTATIC
     Dosage: 300 MG, (1 IN 2 WEEKS)
     Route: 041
     Dates: start: 20130429, end: 20130429
  5. BEVACIZUMAB [Suspect]
     Active Substance: BEVACIZUMAB
     Dosage: 270 MG, (1 IN 2 WEEKS)
     Route: 041
     Dates: start: 20130603
  6. FLUOROURACIL. [Suspect]
     Active Substance: FLUOROURACIL
     Indication: COLORECTAL CANCER METASTATIC
     Dosage: 4400 MG, (1 IN 2 WEEKS)
     Route: 041
     Dates: start: 20130429, end: 20130429

REACTIONS (2)
  - Febrile neutropenia [Recovered/Resolved]
  - Septic shock [Recovered/Resolved]

NARRATIVE: CASE EVENT DATE: 20130510
